FAERS Safety Report 11057451 (Version 2)
Quarter: 2015Q3

REPORT INFORMATION
  Report Type: Spontaneous
  Country: US (occurrence: US)
  Receive Date: 20150422
  Receipt Date: 20150709
  Transmission Date: 20151125
  Serious: Yes (Other)
  Sender: FDA-Public Use
  Company Number: US-CELGENEUS-USA-2015042941

PATIENT
  Sex: Male

DRUGS (2)
  1. THALOMID [Suspect]
     Active Substance: THALIDOMIDE
     Indication: ANAEMIA
     Route: 048
     Dates: start: 201502
  2. THALOMID [Suspect]
     Active Substance: THALIDOMIDE
     Indication: INTESTINAL HAEMORRHAGE
     Route: 048
     Dates: start: 201504

REACTIONS (2)
  - Drug ineffective [Unknown]
  - Full blood count decreased [Unknown]

NARRATIVE: CASE EVENT DATE: 2015
